FAERS Safety Report 23754253 (Version 1)
Quarter: 2024Q2

REPORT INFORMATION
  Report Type: Report from Study
  Country: BE (occurrence: BE)
  Receive Date: 20240418
  Receipt Date: 20240418
  Transmission Date: 20240716
  Serious: Yes (Death)
  Sender: FDA-Public Use
  Company Number: BE-ABBVIE-5722825

PATIENT
  Age: 86 Year
  Sex: Male
  Weight: 90 kg

DRUGS (4)
  1. CARBIDOPA\LEVODOPA [Suspect]
     Active Substance: CARBIDOPA\LEVODOPA
     Indication: Parkinson^s disease
     Dosage: MD: 8.0 ML, 3.4 ML/H, ED: 3.0 ML DURING 16 HOURS
     Route: 050
     Dates: start: 20231005, end: 20240415
  2. CARBIDOPA\LEVODOPA [Suspect]
     Active Substance: CARBIDOPA\LEVODOPA
     Route: 050
     Dates: start: 20130204
  3. STALEVO [Concomitant]
     Active Substance: CARBIDOPA\ENTACAPONE\LEVODOPA
     Indication: Product used for unknown indication
     Dosage: FORM STRENGTH: 200 MG?FREQUENCY TEXT: AT 06:00,10:00,14:00,18:00
  4. PRAMIPEXOLE [Concomitant]
     Active Substance: PRAMIPEXOLE\PRAMIPEXOLE DIHYDROCHLORIDE
     Indication: Product used for unknown indication
     Dosage: FORM STRENGTH: 2.1 MG?FREQUENCY TEXT: AT 08 HOURS

REACTIONS (1)
  - Death [Fatal]

NARRATIVE: CASE EVENT DATE: 20240415
